FAERS Safety Report 19975128 (Version 1)
Quarter: 2021Q4

REPORT INFORMATION
  Report Type: Spontaneous
  Country: US (occurrence: US)
  Receive Date: 20211020
  Receipt Date: 20211020
  Transmission Date: 20220303
  Serious: No
  Sender: FDA-Public Use
  Company Number: US-ALLERGAN-2034279US

PATIENT
  Sex: Female

DRUGS (1)
  1. LINZESS [Suspect]
     Active Substance: LINACLOTIDE
     Indication: Product used for unknown indication
     Dosage: 1 DF, QD

REACTIONS (5)
  - Muscle spasms [Unknown]
  - Cognitive disorder [Unknown]
  - Repetitive speech [Unknown]
  - Abdominal pain [Unknown]
  - Abdominal distension [Unknown]
